FAERS Safety Report 9534245 (Version 3)
Quarter: 2013Q4

REPORT INFORMATION
  Report Type: Report from Study
  Country: GB (occurrence: GB)
  Receive Date: 20130918
  Receipt Date: 20131114
  Transmission Date: 20140711
  Serious: Yes (Congenital Anomaly)
  Sender: FDA-Public Use
  Company Number: GB-VIIV HEALTHCARE LIMITED-A1041735A

PATIENT
  Sex: Female
  Weight: 2.5 kg

DRUGS (7)
  1. ZIDOVUDINE [Suspect]
     Indication: ANTIRETROVIRAL THERAPY
     Route: 064
  2. PREZISTA [Suspect]
     Indication: ANTIRETROVIRAL THERAPY
     Dosage: 1200MG PER DAY
     Route: 064
  3. INTELENCE [Suspect]
     Indication: ANTIRETROVIRAL THERAPY
     Dosage: 1000MG PER DAY
     Route: 064
  4. TIPRANAVIR [Suspect]
     Indication: ANTIRETROVIRAL THERAPY
     Dosage: 1000MG PER DAY
     Route: 064
  5. ISENTRESS [Suspect]
     Indication: ANTIRETROVIRAL THERAPY
     Dosage: 800MG PER DAY
     Route: 064
  6. NORVIR [Suspect]
     Indication: ANTIRETROVIRAL THERAPY
     Dosage: 200MG PER DAY
     Route: 064
  7. TRUVADA [Suspect]
     Indication: ANTIRETROVIRAL THERAPY
     Route: 064

REACTIONS (25)
  - Spine malformation [Unknown]
  - Cloacal exstrophy [Unknown]
  - Tethered cord syndrome [Unknown]
  - Genitalia external ambiguous [Unknown]
  - Gastrointestinal malformation [Unknown]
  - Bladder agenesis [Unknown]
  - Gastrointestinal disorder congenital [Unknown]
  - Spine malformation [Unknown]
  - Lipodystrophy acquired [Unknown]
  - Anal atresia [Unknown]
  - Congenital genital malformation [Unknown]
  - Meningomyelocele [Unknown]
  - Sepsis neonatal [Unknown]
  - Exomphalos [Unknown]
  - Meconium stain [Unknown]
  - Premature baby [Unknown]
  - Blood iron decreased [Unknown]
  - Erythema [Unknown]
  - Congenital anomaly [Unknown]
  - Umbilical cord abnormality [Unknown]
  - Musculoskeletal discomfort [Unknown]
  - Foetal exposure during pregnancy [Unknown]
  - Spina bifida [Unknown]
  - Neural tube defect [Unknown]
  - Fibrosis [Unknown]
